FAERS Safety Report 6402249-5 (Version None)
Quarter: 2009Q4

REPORT INFORMATION
  Report Type: 
  Country: None (occurrence: None)
  Receive Date: 20091015
  Receipt Date: 20091002
  Transmission Date: 20100525
  Serious: Yes (Hospitalization)
  Sender: FDA-Public Use
  Company Number: PHHY2009FR33353

PATIENT
  Sex: Male

DRUGS (6)
  1. STALEVO 100 [Suspect]
     Indication: PARKINSON'S DISEASE
     Dosage: 400/300/75 MG/DAY
     Dates: start: 20090422
  2. PREVISCAN [Concomitant]
     Route: 048
  3. ALLOPURINOL [Concomitant]
     Dosage: UNK
     Dates: start: 20050101
  4. DEPAKENE [Concomitant]
     Indication: EPILEPSY
     Dosage: 100 MG/DAY
     Route: 048
     Dates: start: 20040101
  5. IKOREL [Concomitant]
     Indication: HYPERTENSION
     Dosage: UNK
     Dates: start: 20050101
  6. REMINYL                                 /UNK/ [Concomitant]
     Indication: VASCULAR DEMENTIA
     Dosage: 16 MG/DAY
     Route: 048

REACTIONS (7)
  - CYTOLYTIC HEPATITIS [None]
  - EOSINOPHILIA [None]
  - PRURITUS [None]
  - PYREXIA [None]
  - RASH PAPULAR [None]
  - SKIN LESION [None]
  - URTICARIA [None]
